FAERS Safety Report 25229592 (Version 1)
Quarter: 2025Q2

REPORT INFORMATION
  Report Type: Spontaneous
  Country: US (occurrence: US)
  Receive Date: 20250423
  Receipt Date: 20250423
  Transmission Date: 20250716
  Serious: Yes (Hospitalization)
  Sender: MYLAN
  Company Number: US-MYLANLABS-2025M1034836

PATIENT
  Age: 69 Year
  Sex: Female

DRUGS (12)
  1. PANTOPRAZOLE [Suspect]
     Active Substance: PANTOPRAZOLE
     Indication: Oesophagitis
     Dosage: UNK, BID
  2. PANTOPRAZOLE [Suspect]
     Active Substance: PANTOPRAZOLE
     Dosage: UNK, BID
     Route: 065
  3. PANTOPRAZOLE [Suspect]
     Active Substance: PANTOPRAZOLE
     Dosage: UNK, BID
     Route: 065
  4. PANTOPRAZOLE [Suspect]
     Active Substance: PANTOPRAZOLE
     Dosage: UNK, BID
  5. PREDNISONE [Suspect]
     Active Substance: PREDNISONE
     Indication: Lichen planus
  6. PREDNISONE [Suspect]
     Active Substance: PREDNISONE
     Indication: Oesophageal disorder
     Route: 065
  7. PREDNISONE [Suspect]
     Active Substance: PREDNISONE
     Route: 065
  8. PREDNISONE [Suspect]
     Active Substance: PREDNISONE
  9. BUDESONIDE [Suspect]
     Active Substance: BUDESONIDE
     Indication: Lichen planus
  10. BUDESONIDE [Suspect]
     Active Substance: BUDESONIDE
     Indication: Oesophageal disorder
     Route: 048
  11. BUDESONIDE [Suspect]
     Active Substance: BUDESONIDE
     Route: 048
  12. BUDESONIDE [Suspect]
     Active Substance: BUDESONIDE

REACTIONS (1)
  - Drug ineffective [Unknown]
